FAERS Safety Report 9788597 (Version 2)
Quarter: 2014Q1

REPORT INFORMATION
  Report Type: Spontaneous
  Country: US (occurrence: US)
  Receive Date: 20131230
  Receipt Date: 20140205
  Transmission Date: 20141002
  Serious: Yes (Hospitalization, Other)
  Sender: FDA-Public Use
  Company Number: US-BAYER-2013-157229

PATIENT
  Age: 23 Year
  Sex: Female
  Weight: 53.06 kg

DRUGS (10)
  1. MIRENA [Suspect]
     Indication: CONTRACEPTION
     Dosage: 20 MCG/24HR, CONT
     Route: 015
     Dates: start: 20120419, end: 20120926
  2. ZOFRAN [Concomitant]
     Dosage: 4 MG, EVERY 6 HOURS
     Route: 048
  3. PROMETHAZINE HYDROCHLORIDE [Concomitant]
     Indication: NAUSEA
     Dosage: 12.5 MG, Q 4-6 HOURS PRN
     Route: 048
  4. PROMETHAZINE HYDROCHLORIDE [Concomitant]
     Indication: VOMITING
  5. MACROBID [Concomitant]
     Indication: URINARY TRACT INFECTION
     Dosage: 100 MG, BID
     Route: 048
  6. NITROFURANT MACRO [Concomitant]
     Indication: URINARY TRACT INFECTION
     Dosage: UNK UNK, BID
  7. PREMARIN [Concomitant]
     Dosage: 1.25 MG, 2 TABS; Q DAY [TIMES] 5 DAYS
     Route: 048
  8. ZOLOFT [Concomitant]
     Dosage: 100 MG, DAILY
     Route: 048
  9. TYLENOL EXTRA STRENGTH [Concomitant]
     Dosage: 500 MG, UNK
  10. SILVER NITRATE [Concomitant]

REACTIONS (12)
  - Uterine perforation [None]
  - Uterine haemorrhage [None]
  - Device difficult to use [None]
  - Device malfunction [None]
  - Dyspareunia [None]
  - Dyspareunia [None]
  - Injury [None]
  - Emotional distress [None]
  - Pain [None]
  - Device dislocation [None]
  - Device issue [None]
  - Depressed mood [None]
